FAERS Safety Report 7315511-9 (Version None)
Quarter: 2011Q1

REPORT INFORMATION
  Report Type: 
  Country: None (occurrence: None)
  Receive Date: 20110225
  Receipt Date: 20110223
  Transmission Date: 20110831
  Serious: Yes (Other)
  Sender: FDA-Public Use
  Company Number: US-AMGEN-USASP2011010540

PATIENT
  Sex: Male
  Weight: 59 kg

DRUGS (1)
  1. NPLATE [Suspect]
     Indication: IDIOPATHIC THROMBOCYTOPENIC PURPURA
     Dosage: 180 A?G, QWK
     Dates: start: 20080801

REACTIONS (5)
  - NASAL CONGESTION [None]
  - PARAESTHESIA [None]
  - THERAPEUTIC RESPONSE DECREASED [None]
  - PLATELET COUNT DECREASED [None]
  - BALANCE DISORDER [None]
